FAERS Safety Report 5753865-5 (Version None)
Quarter: 2008Q2

REPORT INFORMATION
  Report Type: 
  Country: None (occurrence: None)
  Receive Date: 20080530
  Receipt Date: 20080520
  Transmission Date: 20081010
  Serious: Yes (Congenital Anomaly)
  Sender: FDA-Public Use
  Company Number: A0662872A

PATIENT
  Sex: Female

DRUGS (15)
  1. PAXIL [Suspect]
     Indication: DEPRESSION
     Dosage: 20MG PER DAY
     Dates: start: 20001226, end: 20010125
  2. P-EPHED/CPM [Concomitant]
     Dates: start: 20000101
  3. ALBUTEROL [Concomitant]
     Indication: ASTHMA
     Dates: start: 20000101
  4. SULFAMETHOXAZOL [Concomitant]
     Dates: start: 20000101
  5. METRONIDAZOLE HCL [Concomitant]
     Dates: start: 20001206
  6. DICLOXACILLIN [Concomitant]
     Dates: start: 20010114
  7. GUAIFED [Concomitant]
     Dates: start: 20010126
  8. ZITHROMAX [Concomitant]
     Dates: start: 20010201
  9. ZOVIRAX [Concomitant]
     Dates: start: 20010218
  10. TRIMOX [Concomitant]
     Dates: start: 20010219
  11. PREDNISONE TAB [Concomitant]
     Dates: start: 20000219
  12. VITAMIN TAB [Concomitant]
     Indication: PREGNANCY
     Dates: start: 20010101
  13. CEPHALEXIN [Concomitant]
     Indication: INFECTION
     Dates: start: 20010801
  14. TYLENOL [Concomitant]
  15. AMOXICILLIN [Concomitant]
     Indication: BRONCHITIS
     Dates: start: 20010201

REACTIONS (6)
  - ATRIAL SEPTAL DEFECT [None]
  - COGNITIVE DISORDER [None]
  - DEVELOPMENTAL DELAY [None]
  - DRUG EXPOSURE DURING PREGNANCY [None]
  - HEART VALVE INCOMPETENCE [None]
  - MULTIPLE CONGENITAL ABNORMALITIES [None]
